FAERS Safety Report 4512051-7 (Version None)
Quarter: 2004Q4

REPORT INFORMATION
  Report Type: 
  Country: None (occurrence: None)
  Receive Date: 20041123
  Receipt Date: 20040818
  Transmission Date: 20050328
  Serious: No
  Sender: FDA-Public Use
  Company Number: A04200400768

PATIENT
  Age: 57 Year
  Sex: Male

DRUGS (1)
  1. UROXATRAL [Suspect]
     Indication: PROSTATIC ADENOMA
     Dosage: 10 MG OD ORAL
     Route: 048
     Dates: start: 20021101, end: 20040901

REACTIONS (3)
  - LYMPHOMA [None]
  - MYELODYSPLASTIC SYNDROME [None]
  - NEUTROPENIA [None]
